FAERS Safety Report 5056947-9 (Version None)
Quarter: 2006Q2

REPORT INFORMATION
  Report Type: 
  Country: None (occurrence: None)
  Receive Date: 20060622
  Receipt Date: 20050715
  Transmission Date: 20061013
  Serious: Yes (Other)
  Sender: FDA-Public Use
  Company Number: US-JNJFOC-20050703239

PATIENT
  Age: 71 Year
  Sex: Female
  Weight: 122.4712 kg

DRUGS (5)
  1. DURAGESIC-100 [Suspect]
     Indication: PAIN
     Dosage: 12.5 UG/HR, 1 IN 72 HOUR, TRANSDERMAL
     Route: 062
     Dates: start: 20050707, end: 20050707
  2. DURAGESIC-100 [Suspect]
     Indication: PAIN
     Dosage: 12.5 UG/HR, 1 IN 72 HOUR, TRANSDERMAL
     Route: 062
     Dates: start: 20050712
  3. MOBIC [Concomitant]
  4. ZESTRIL [Concomitant]
  5. XANAX [Concomitant]

REACTIONS (6)
  - ARTHRALGIA [None]
  - BURNING SENSATION [None]
  - DIARRHOEA [None]
  - DRUG WITHDRAWAL SYNDROME [None]
  - HYPOAESTHESIA [None]
  - VISION BLURRED [None]
